FAERS Safety Report 20702571 (Version 1)
Quarter: 2022Q2

REPORT INFORMATION
  Report Type: Spontaneous
  Country: US (occurrence: US)
  Receive Date: 20220412
  Receipt Date: 20220412
  Transmission Date: 20220721
  Serious: No
  Sender: FDA-Public Use
  Company Number: US-PFIZER INC-202101288778

PATIENT
  Age: 39 Year
  Sex: Male

DRUGS (1)
  1. EUCRISA [Suspect]
     Active Substance: CRISABOROLE
     Dosage: APPLY A THIN LAYER TO HANDS TWICE DAILY
     Route: 061

REACTIONS (1)
  - Hypertension [Recovering/Resolving]
